FAERS Safety Report 4344389-0 (Version None)
Quarter: 2004Q2

REPORT INFORMATION
  Report Type: 
  Country: None (occurrence: None)
  Receive Date: 20040422
  Receipt Date: 20040412
  Transmission Date: 20050107
  Serious: Yes (Death, Hospitalization)
  Sender: FDA-Public Use
  Company Number: US-BRISTOL-MYERS SQUIBB COMPANY-12557245

PATIENT
  Age: 58 Year
  Sex: Female

DRUGS (3)
  1. DIDANOSINE [Suspect]
  2. STAVUDINE [Suspect]
  3. TENOFOVIR [Suspect]

REACTIONS (10)
  - BLOOD PRESSURE DIASTOLIC INCREASED [None]
  - BODY TEMPERATURE DECREASED [None]
  - CARDIAC ARREST [None]
  - DIALYSIS [None]
  - DYSPNOEA [None]
  - GENERAL PHYSICAL HEALTH DETERIORATION [None]
  - HYPOTENSION [None]
  - LACTIC ACIDOSIS [None]
  - PANCREATITIS [None]
  - RESPIRATORY FAILURE [None]
